FAERS Safety Report 5823785-6 (Version None)
Quarter: 2008Q3

REPORT INFORMATION
  Report Type: 
  Country: None (occurrence: None)
  Receive Date: 20080725
  Receipt Date: 20080716
  Transmission Date: 20090109
  Serious: Yes (Death, Hospitalization)
  Sender: FDA-Public Use
  Company Number: JP-MERCK-0806USA08918

PATIENT
  Age: 78 Year
  Sex: Female

DRUGS (8)
  1. PEPCID [Suspect]
     Indication: GASTROINTESTINAL DISORDER POSTOPERATIVE
     Route: 042
     Dates: start: 19950914
  2. DEXTROSE [Concomitant]
     Route: 042
     Dates: start: 19950914
  3. VITAMEDIN [Concomitant]
     Route: 042
     Dates: start: 19950914
  4. PANTOL [Concomitant]
     Route: 042
     Dates: start: 19950914
  5. SODIUM CHLORIDE [Concomitant]
     Route: 042
     Dates: start: 19950914
  6. FLUMARIN [Concomitant]
     Route: 042
     Dates: start: 19950914
  7. FOY [Concomitant]
     Route: 065
     Dates: start: 19950914
  8. IMMUNE GLOBULIN INTRAVENOUS (HUMAN) [Concomitant]
     Route: 065
     Dates: start: 19950914

REACTIONS (2)
  - CELLULITIS [None]
  - SEPSIS [None]
